FAERS Safety Report 4506827-X (Version None)
Quarter: 2004Q4

REPORT INFORMATION
  Report Type: 
  Country: None (occurrence: None)
  Receive Date: 20041122
  Receipt Date: 20041111
  Transmission Date: 20050328
  Serious: Yes (Hospitalization)
  Sender: FDA-Public Use
  Company Number: JP-GLAXOSMITHKLINE-B0356962A

PATIENT
  Sex: Male

DRUGS (2)
  1. ZOVIRAX [Suspect]
     Indication: HERPES ZOSTER
     Dosage: 5MGK THREE TIMES PER DAY
     Route: 042
     Dates: start: 20041028, end: 20041103
  2. PHENOBAL [Concomitant]
     Route: 065

REACTIONS (1)
  - DRUG ERUPTION [None]
